FAERS Safety Report 8180947-3 (Version None)
Quarter: 2012Q1

REPORT INFORMATION
  Report Type: 
  Country: None (occurrence: None)
  Receive Date: 20120229
  Receipt Date: 20120214
  Transmission Date: 20120608
  Serious: Yes (Other)
  Sender: FDA-Public Use
  Company Number: B0783006A

PATIENT
  Age: 53 Year
  Sex: Female

DRUGS (2)
  1. CEFAZOLIN SODIUM [Suspect]
     Indication: INFECTIOUS PERITONITIS
     Dosage: SEE TEXT
  2. CEFTAZIDIME SODIUM [Suspect]
     Indication: INFECTIOUS PERITONITIS
     Dosage: SEE TEXT

REACTIONS (2)
  - DRUG HYPERSENSITIVITY [None]
  - NONINFECTIOUS PERITONITIS [None]
